FAERS Safety Report 17769130 (Version 2)
Quarter: 2020Q2

REPORT INFORMATION
  Report Type: Spontaneous
  Country: BR (occurrence: BR)
  Receive Date: 20200512
  Receipt Date: 20200528
  Transmission Date: 20200714
  Serious: Yes (Death, Hospitalization, Other)
  Sender: FDA-Public Use
  Company Number: BR-SA-2020SA119535

PATIENT
  Age: 61 Year
  Sex: Male
  Weight: 61 kg

DRUGS (3)
  1. DEXCHLORPHENIRAMINE [Concomitant]
     Active Substance: DEXCHLORPHENIRAMINE
     Indication: PREMEDICATION
     Dosage: 2 MG
     Dates: start: 20121105, end: 20200415
  2. ACETAMINOPHEN. [Concomitant]
     Active Substance: ACETAMINOPHEN
     Indication: PREMEDICATION
     Dosage: 500 MG
     Dates: start: 20121105, end: 20200415
  3. FABRAZYME [Suspect]
     Active Substance: AGALSIDASE BETA
     Indication: FABRY^S DISEASE
     Dosage: 70 MG, QOW
     Route: 042
     Dates: start: 20121105, end: 20200428

REACTIONS (11)
  - Cardiomyopathy [Fatal]
  - Chronic kidney disease [Unknown]
  - Blood creatine abnormal [Unknown]
  - Respiratory failure [Fatal]
  - Blood urea abnormal [Unknown]
  - Nephropathy [Unknown]
  - Hypervolaemia [Fatal]
  - Wrong technique in product usage process [Unknown]
  - Neuropathy peripheral [Unknown]
  - Blood potassium abnormal [Unknown]
  - Cardiac failure [Unknown]

NARRATIVE: CASE EVENT DATE: 20200121
